FAERS Safety Report 8450373-8 (Version None)
Quarter: 2012Q2

REPORT INFORMATION
  Report Type: 
  Country: None (occurrence: None)
  Receive Date: 20120620
  Receipt Date: 20120615
  Transmission Date: 20120825
  Serious: Yes (Other)
  Sender: FDA-Public Use
  Company Number: US-PFIZER INC-2012144980

PATIENT
  Sex: Male
  Weight: 94.8 kg

DRUGS (9)
  1. PROPRANOLOL [Concomitant]
     Dosage: UNK
  2. PRIMIDONE [Concomitant]
     Dosage: 250 MG, 3X/DAY
  3. VIAGRA [Concomitant]
     Dosage: UNK, AS NEEDED
  4. PLAVIX [Concomitant]
     Dosage: 75 MG, 1X/DAY
  5. NEURONTIN [Suspect]
     Indication: MUSCLE SPASMS
     Dosage: 1200 MG, 3X/DAY
     Route: 048
  6. ACETYLSALICYLIC ACID [Concomitant]
     Dosage: 81 MG, 1X/DAY
  7. BACLOFEN [Concomitant]
     Dosage: UNK, 3X/DAY
  8. NEURONTIN [Suspect]
     Indication: PAIN
  9. CELEBREX [Concomitant]
     Dosage: UNK

REACTIONS (2)
  - TRANSIENT ISCHAEMIC ATTACK [None]
  - ROAD TRAFFIC ACCIDENT [None]
